FAERS Safety Report 16769919 (Version 1)
Quarter: 2019Q3

REPORT INFORMATION
  Report Type: Spontaneous
  Country: US (occurrence: US)
  Receive Date: 20190904
  Receipt Date: 20190904
  Transmission Date: 20191005
  Serious: Yes (Disabling)
  Sender: FDA-Public Use
  Company Number: US-TEVA-2019-US-1101456

PATIENT

DRUGS (4)
  1. DOCEFREZ [Suspect]
     Active Substance: DOCETAXEL ANHYDROUS
     Route: 065
     Dates: start: 201609, end: 201701
  2. TAXOTERE [Suspect]
     Active Substance: DOCETAXEL
     Route: 065
     Dates: start: 201609, end: 201701
  3. DOCETAXEL. [Suspect]
     Active Substance: DOCETAXEL
     Dosage: FORM: DOCETAXEL INJECTION CONCENTRATE
     Route: 065
     Dates: start: 201609, end: 201701
  4. DOCETAXEL. [Suspect]
     Active Substance: DOCETAXEL
     Route: 065
     Dates: start: 201609, end: 201701

REACTIONS (1)
  - Alopecia [Not Recovered/Not Resolved]
